FAERS Safety Report 7115926-8 (Version None)
Quarter: 2010Q4

REPORT INFORMATION
  Report Type: 
  Country: None (occurrence: None)
  Receive Date: 20101122
  Receipt Date: 20101109
  Transmission Date: 20110411
  Serious: Yes (Hospitalization, Other)
  Sender: FDA-Public Use
  Company Number: US-ELI_LILLY_AND_COMPANY-US201010001138

PATIENT
  Sex: Female

DRUGS (4)
  1. FORTEO [Suspect]
     Indication: OSTEOPOROSIS
     Dosage: 20 UG, DAILY (1/D)
     Dates: start: 20100811
  2. AMOXICILLIN [Concomitant]
     Indication: EAR INFECTION
     Dosage: 500 MG, DAILY (1/D)
  3. LODRANE [Concomitant]
     Indication: EAR INFECTION
     Dosage: 1 D/F, 2/D
  4. FLUTICASONE PROPIONATE [Concomitant]
     Indication: EAR INFECTION
     Dosage: 50 UG, 2/D

REACTIONS (14)
  - BEDRIDDEN [None]
  - BODY TEMPERATURE INCREASED [None]
  - BRONCHITIS [None]
  - CHEST PAIN [None]
  - DRUG DOSE OMISSION [None]
  - HOSPITALISATION [None]
  - HYPERHIDROSIS [None]
  - INFLUENZA LIKE ILLNESS [None]
  - MALAISE [None]
  - NECK PAIN [None]
  - PAIN [None]
  - PNEUMONIA [None]
  - PYREXIA [None]
  - SINUS DISORDER [None]
